FAERS Safety Report 6744386-1 (Version None)
Quarter: 2010Q2

REPORT INFORMATION
  Report Type: 
  Country: None (occurrence: None)
  Receive Date: 20100527
  Receipt Date: 20100518
  Transmission Date: 20101027
  Serious: Yes (Death, Other)
  Sender: FDA-Public Use
  Company Number: US-PFIZER INC-2010064009

PATIENT
  Age: 49 Year
  Sex: Female

DRUGS (3)
  1. NEURONTIN [Suspect]
     Indication: BACK PAIN
     Dosage: 300 MG, UNK
     Dates: start: 20070308
  2. GABAPENTIN [Suspect]
     Indication: BACK PAIN
     Dosage: 300 MG, UNK
     Dates: start: 20070308
  3. GABAPENTIN [Suspect]
     Dosage: 300 MG, UNK
     Dates: start: 20070403

REACTIONS (2)
  - COMPLETED SUICIDE [None]
  - FEAR OF DEATH [None]
